FAERS Safety Report 5081004-5 (Version None)
Quarter: 2006Q3

REPORT INFORMATION
  Report Type: 
  Country: None (occurrence: None)
  Receive Date: 20060810
  Receipt Date: 20060808
  Transmission Date: 20061208
  Serious: Yes (Hospitalization)
  Sender: FDA-Public Use
  Company Number: TPA2006A00024

PATIENT
  Age: 69 Year
  Sex: Female
  Weight: 90.2658 kg

DRUGS (7)
  1. ACTOS [Suspect]
     Indication: DIABETES MELLITUS NON-INSULIN-DEPENDENT
     Dosage: 30 MG, 1 IN 1 D, PER ORAL
     Route: 048
     Dates: start: 20040101, end: 20051015
  2. AVAPRO [Concomitant]
  3. ZOCOR [Concomitant]
  4. CENTRUM SILVER (ASCORBIC ACID, TOCOPHERYL ACETATE, RETINOL, ZINC, CALC [Concomitant]
  5. CALCIUM (CALCIUM) [Concomitant]
  6. BONIVA (ALL OTHER THERAPEUTIC PRODUCTS) [Concomitant]
  7. SYSTANE (ALL OTHER THERAPEUTIC PRODUCTS) [Concomitant]

REACTIONS (8)
  - BLOOD GLUCOSE INCREASED [None]
  - DRY EYE [None]
  - DRY MOUTH [None]
  - INTERVERTEBRAL DISC PROTRUSION [None]
  - MIDDLE INSOMNIA [None]
  - POLLAKIURIA [None]
  - WEIGHT INCREASED [None]
  - WEIGHT LOSS POOR [None]
